FAERS Safety Report 7994801-0 (Version None)
Quarter: 2011Q4

REPORT INFORMATION
  Report Type: 
  Country: None (occurrence: None)
  Receive Date: 20111220
  Receipt Date: 20111213
  Transmission Date: 20120403
  Serious: Yes (Other)
  Sender: FDA-Public Use
  Company Number: US-PFIZER INC-2011270854

PATIENT
  Sex: Female
  Weight: 79.37 kg

DRUGS (11)
  1. PREMPRO [Concomitant]
     Dosage: UNK
  2. CALCIUM CARBONATE [Concomitant]
     Dosage: UNK
  3. GLUCOSAMINE [Concomitant]
     Dosage: UNK
  4. VITAMIN E [Concomitant]
     Dosage: UNK
  5. ACTONEL [Concomitant]
     Dosage: 35 MG, WEEKLY
  6. LEVOTHYROXINE SODIUM [Concomitant]
     Dosage: 50 MG, DAILY
  7. MULTI-VITAMINS [Concomitant]
     Dosage: UNK
  8. ACETYLSALICYLIC ACID [Concomitant]
     Dosage: UNK
  9. LIPITOR [Suspect]
     Indication: HYPERLIPIDAEMIA
  10. LIPITOR [Suspect]
     Indication: HYPERCHOLESTEROLAEMIA
     Dosage: 20 MG, 1X/DAY
     Route: 048
     Dates: start: 20020701, end: 20111001
  11. MELOXICAM [Concomitant]
     Dosage: UNK

REACTIONS (4)
  - ARTHRITIS [None]
  - LUPUS-LIKE SYNDROME [None]
  - CHEST PAIN [None]
  - DYSPNOEA EXERTIONAL [None]
